FAERS Safety Report 17391520 (Version 2)
Quarter: 2020Q1

REPORT INFORMATION
  Report Type: Spontaneous
  Country: NL (occurrence: NL)
  Receive Date: 20200207
  Receipt Date: 20200219
  Transmission Date: 20200409
  Serious: Yes (Other)
  Sender: FDA-Public Use
  Company Number: NL-AUROBINDO-AUR-APL-2017-12266

PATIENT
  Age: 51 Year
  Sex: Male

DRUGS (11)
  1. ACENOCOUMAROL [Interacting]
     Active Substance: ACENOCOUMAROL
     Dosage: 6.7 MILLIGRAM, ONCE A DAY
     Route: 048
  2. ACENOCOUMAROL [Interacting]
     Active Substance: ACENOCOUMAROL
     Dosage: 8.3 MILLIGRAM, ONCE A DAY
     Route: 048
  3. EMTRICITABINE [Concomitant]
     Active Substance: EMTRICITABINE
     Indication: ACQUIRED IMMUNODEFICIENCY SYNDROME
     Dosage: 200 MILLIGRAM
     Route: 065
     Dates: start: 200703
  4. DIDANOSINE. [Concomitant]
     Active Substance: DIDANOSINE
     Indication: ACQUIRED IMMUNODEFICIENCY SYNDROME
     Dosage: 400 MILLIGRAM, ONCE A DAY
     Route: 065
  5. ACENOCOUMAROL [Interacting]
     Active Substance: ACENOCOUMAROL
     Indication: THROMBOSIS PROPHYLAXIS
     Dosage: 4.2 MG, ONCE A DAY
     Route: 048
  6. EFAVIRENZ. [Suspect]
     Active Substance: EFAVIRENZ
     Indication: ACQUIRED IMMUNODEFICIENCY SYNDROME
     Dosage: 600 MG, ONCE A DAY
     Route: 065
     Dates: start: 200703, end: 200807
  7. ATAZANAVIR;RITONAVIR [Interacting]
     Active Substance: ATAZANAVIR\RITONAVIR
     Indication: ACQUIRED IMMUNODEFICIENCY SYNDROME
     Dosage: 300/100 MG ONCE DAILY
     Route: 065
     Dates: start: 200807, end: 200809
  8. ZIDOVUDINE. [Concomitant]
     Active Substance: ZIDOVUDINE
     Indication: ACQUIRED IMMUNODEFICIENCY SYNDROME
     Dosage: 300 MILLIGRAM, TWO TIMES A DAY
     Route: 065
  9. ACENOCOUMAROL [Interacting]
     Active Substance: ACENOCOUMAROL
     Dosage: 6.4 MILLIGRAM, ONCE A DAY
     Route: 048
  10. TENOFOVIR DISOPROXIL FUMARATE. [Concomitant]
     Active Substance: TENOFOVIR DISOPROXIL FUMARATE
     Indication: ACQUIRED IMMUNODEFICIENCY SYNDROME
     Dosage: 245 MILLIGRAM
     Route: 065
     Dates: start: 200703
  11. LAMIVUDINE. [Concomitant]
     Active Substance: LAMIVUDINE
     Indication: ACQUIRED IMMUNODEFICIENCY SYNDROME
     Dosage: 150 MILLIGRAM
     Route: 065

REACTIONS (2)
  - Drug interaction [Unknown]
  - International normalised ratio decreased [Recovered/Resolved]
